FAERS Safety Report 7543438-6 (Version None)
Quarter: 2011Q2

REPORT INFORMATION
  Report Type: 
  Country: None (occurrence: None)
  Receive Date: 20110524
  Receipt Date: 20110301
  Transmission Date: 20111010
  Serious: No
  Sender: FDA-Public Use
  Company Number: 022162

PATIENT
  Sex: Female
  Weight: 40 kg

DRUGS (15)
  1. ATIVAN [Concomitant]
  2. VITAMIN B12 NOS [Concomitant]
  3. PENTASA [Concomitant]
  4. ZOLOFT [Concomitant]
  5. POTASSIUM CHLORIDE [Concomitant]
  6. CIMZIA [Suspect]
     Indication: CROHN'S DISEASE
     Dosage: (200 MG, EVERY 10-14 DAYS SUBCUTANEOUS)
     Route: 058
     Dates: start: 20081106, end: 20110301
  7. LOMOTIL /00034001/ [Concomitant]
  8. METHOTREXATE [Concomitant]
  9. NEXIUM [Concomitant]
  10. MULTI-VITAMINS [Concomitant]
  11. FOLIC ACID [Concomitant]
  12. KETOTIFEN /00495202/ [Concomitant]
  13. LEVSIN [Concomitant]
  14. FERROUS SULFATE TAB [Concomitant]
  15. ENTOCORT EC [Concomitant]

REACTIONS (3)
  - URINARY TRACT INFECTION [None]
  - ENTERITIS [None]
  - UPPER RESPIRATORY TRACT INFECTION [None]
